FAERS Safety Report 24689472 (Version 7)
Quarter: 2025Q1

REPORT INFORMATION
  Report Type: Spontaneous
  Country: GR (occurrence: GR)
  Receive Date: 20241203
  Receipt Date: 20250317
  Transmission Date: 20250408
  Serious: Yes (Death, Other)
  Sender: CELLTRION
  Company Number: GR-ROCHE-3567594

PATIENT

DRUGS (3)
  1. BEVACIZUMAB [Suspect]
     Active Substance: BEVACIZUMAB
     Indication: Neoplasm malignant
     Dosage: 305 MG, EVERY 2 WEEKS (ON 14/MAR/2024, SHE RECEIVED MOST RECENT DOSE OF BEVACIZUMAB)
     Route: 042
     Dates: start: 20221019, end: 20240314
  2. FLUOROURACIL [Suspect]
     Active Substance: FLUOROURACIL
     Indication: Neoplasm malignant
     Dosage: 680 MG, EVERY 2 WEEKS (ON 14/MAR/2024, SHE RECEIVED MOST RECENT DOSE OF FLUROURACIL)
     Route: 042
     Dates: start: 20230606, end: 20240426
  3. IRINOTECAN [Suspect]
     Active Substance: IRINOTECAN
     Indication: Neoplasm malignant
     Dosage: 150 MG, EVERY 2 WEEKS (ON 14/MAR/2024, SHE RECEIVED MOST RECENT DOSE OF IRINOTECAN)
     Route: 042
     Dates: start: 20240115, end: 20240426

REACTIONS (2)
  - Ill-defined disorder [Fatal]
  - Pulmonary embolism [Not Recovered/Not Resolved]

NARRATIVE: CASE EVENT DATE: 20240401
